FAERS Safety Report 18683847 (Version 1)
Quarter: 2020Q4

REPORT INFORMATION
  Report Type: Spontaneous
  Country: US (occurrence: US)
  Receive Date: 20201230
  Receipt Date: 20201230
  Transmission Date: 20210114
  Serious: Yes (Hospitalization)
  Sender: FDA-Public Use
  Company Number: US-MYLANLABS-2020M1105776

PATIENT
  Age: 66 Year
  Sex: Female

DRUGS (8)
  1. SARILUMAB [Concomitant]
     Active Substance: SARILUMAB
     Indication: CYTOKINE STORM
     Dosage: UNK
     Route: 065
  2. ANAKINRA [Concomitant]
     Active Substance: ANAKINRA
     Indication: CYTOKINE STORM
     Dosage: UNK
     Route: 065
  3. COTRIMOXAZOLE [Concomitant]
     Active Substance: SULFAMETHOXAZOLE\TRIMETHOPRIM
     Indication: INFECTION PROPHYLAXIS
     Dosage: UNK
     Route: 065
  4. ACYCLOVIR                          /00587301/ [Concomitant]
     Active Substance: ACYCLOVIR
     Indication: INFECTION PROPHYLAXIS
     Dosage: UNK
     Route: 065
  5. DEXAMETHASONE. [Concomitant]
     Active Substance: DEXAMETHASONE
     Indication: CYTOKINE STORM
     Dosage: UNK
     Route: 065
  6. ETOPOSIDE. [Suspect]
     Active Substance: ETOPOSIDE
     Indication: CYTOKINE STORM
     Dosage: 50 MILLIGRAM/SQ. METER, QW SECOND DOSE WAS GIVEN AFTER 7 DAYS
     Route: 042
  7. HEPARIN [Suspect]
     Active Substance: HEPARIN SODIUM
     Indication: ANTICOAGULANT THERAPY
     Dosage: UNK
     Route: 065
  8. IMMUNOGLOBULIN                     /00025201/ [Concomitant]
     Active Substance: HUMAN IMMUNOGLOBULIN G
     Indication: CYTOKINE STORM
     Dosage: UNK
     Route: 042

REACTIONS (4)
  - Off label use [Unknown]
  - Transaminases increased [Recovered/Resolved]
  - Heparin-induced thrombocytopenia [Recovering/Resolving]
  - Extremity necrosis [Unknown]
